FAERS Safety Report 9371159 (Version 1)
Quarter: 2013Q2

REPORT INFORMATION
  Report Type: Spontaneous
  Country: FR (occurrence: FR)
  Receive Date: 20130627
  Receipt Date: 20130627
  Transmission Date: 20140414
  Serious: Yes (Hospitalization)
  Sender: FDA-Public Use
  Company Number: FR-ROCHE-1242183

PATIENT
  Age: 76 Year
  Sex: Male

DRUGS (9)
  1. AVASTIN [Suspect]
     Indication: COLORECTAL CANCER METASTATIC
     Dosage: LAST DOSE PRIOR TO SAE: 13/MAY/2013
     Route: 065
  2. VENTOLINE [Concomitant]
  3. SERETIDE [Concomitant]
  4. FORADIL [Concomitant]
  5. VERSATIS [Concomitant]
  6. DOLIPRANE [Concomitant]
  7. EXFORGE [Concomitant]
  8. DICLOFENAC [Concomitant]
  9. TRIVASTAL [Concomitant]

REACTIONS (2)
  - Petit mal epilepsy [Recovered/Resolved]
  - Tonic convulsion [Recovered/Resolved]
